FAERS Safety Report 7159756-X (Version None)
Quarter: 2010Q4

REPORT INFORMATION
  Report Type: 
  Country: None (occurrence: None)
  Receive Date: 20101214
  Receipt Date: 20101007
  Transmission Date: 20110411
  Serious: No
  Sender: FDA-Public Use
  Company Number: US-ASTRAZENECA-2010SE47582

PATIENT
  Age: 80 Year
  Sex: Female

DRUGS (8)
  1. CRESTOR [Suspect]
     Route: 048
     Dates: start: 20100811, end: 20101001
  2. ACTONEL [Concomitant]
  3. CARDURA [Concomitant]
  4. CELEBREX [Concomitant]
  5. DETROL LA [Concomitant]
  6. LASIX [Concomitant]
  7. DIOVAN [Concomitant]
  8. LOPRESSOR [Concomitant]

REACTIONS (2)
  - CONTUSION [None]
  - SWELLING FACE [None]
